FAERS Safety Report 5828720-2 (Version None)
Quarter: 2008Q3

REPORT INFORMATION
  Report Type: 
  Country: None (occurrence: None)
  Receive Date: 20080729
  Receipt Date: 20080729
  Transmission Date: 20090109
  Serious: Yes (Disabling)
  Sender: FDA-Public Use
  Company Number: None

PATIENT
  Sex: Female
  Weight: 59.8748 kg

DRUGS (1)
  1. AVELOX [Suspect]
     Indication: BRONCHITIS
     Dosage: 1 PILL ONCE A DAY PO
     Route: 048
     Dates: start: 20080710, end: 20080715

REACTIONS (2)
  - ADVERSE DRUG REACTION [None]
  - CARDIAC DISORDER [None]
